FAERS Safety Report 20358927 (Version 2)
Quarter: 2022Q1

REPORT INFORMATION
  Report Type: Report from Study
  Country: US (occurrence: US)
  Receive Date: 20220120
  Receipt Date: 20220125
  Transmission Date: 20220423
  Serious: No
  Sender: FDA-Public Use
  Company Number: US-BIOVITRUM-2022US00052

PATIENT
  Age: 37 Year
  Sex: Female

DRUGS (19)
  1. KINERET [Suspect]
     Active Substance: ANAKINRA
     Indication: Pyrexia
     Route: 058
     Dates: start: 20211230
  2. KINERET [Suspect]
     Active Substance: ANAKINRA
     Indication: Idiopathic urticaria
  3. PREDNISONE [Concomitant]
     Active Substance: PREDNISONE
  4. MAGNESIUM [Concomitant]
     Active Substance: MAGNESIUM
  5. LISINOPRIL [Concomitant]
     Active Substance: LISINOPRIL
  6. TIZANIDINE [Concomitant]
     Active Substance: TIZANIDINE
  7. ESTRADIOL [Concomitant]
     Active Substance: ESTRADIOL
  8. KEPPRA [Concomitant]
     Active Substance: LEVETIRACETAM
  9. ELIQUIS [Concomitant]
     Active Substance: APIXABAN
  10. OMEPRAZOLE [Concomitant]
     Active Substance: OMEPRAZOLE
  11. FOLIC ACID [Concomitant]
     Active Substance: FOLIC ACID
  12. RIZATRIPTAN [Concomitant]
     Active Substance: RIZATRIPTAN
  13. PREDNISOLONE [Concomitant]
     Active Substance: PREDNISOLONE
  14. GABAPENTIN [Concomitant]
     Active Substance: GABAPENTIN
  15. CLONAZEPAM [Concomitant]
     Active Substance: CLONAZEPAM
  16. COLCHICINE [Concomitant]
     Active Substance: COLCHICINE
  17. ALLEGRA [Concomitant]
     Active Substance: FEXOFENADINE HYDROCHLORIDE
  18. XYZAL [Concomitant]
     Active Substance: LEVOCETIRIZINE DIHYDROCHLORIDE
  19. ZOFRAN [Concomitant]
     Active Substance: ONDANSETRON HYDROCHLORIDE

REACTIONS (4)
  - Body temperature abnormal [Unknown]
  - COVID-19 [Unknown]
  - Injection site pain [Unknown]
  - Off label use [Unknown]

NARRATIVE: CASE EVENT DATE: 20211230
